FAERS Safety Report 5774299-3 (Version None)
Quarter: 2008Q2

REPORT INFORMATION
  Report Type: 
  Country: None (occurrence: None)
  Receive Date: 20080616
  Receipt Date: 20080610
  Transmission Date: 20081010
  Serious: Yes (Death, Life-Threatening, Other)
  Sender: FDA-Public Use
  Company Number: JP-BAYER-200811052BYL

PATIENT
  Age: 72 Year
  Sex: Male
  Weight: 60 kg

DRUGS (7)
  1. NEXAVAR [Suspect]
     Indication: RENAL CELL CARCINOMA STAGE IV
     Dosage: TOTAL DAILY DOSE: 800 MG  UNIT DOSE: 200 MG
     Route: 048
     Dates: start: 20080418, end: 20080522
  2. MOBIC [Concomitant]
     Dosage: AS USED: 10 MG
     Route: 048
     Dates: start: 20080418, end: 20080422
  3. LASIX [Concomitant]
     Dosage: AS USED: 40 MG
     Route: 048
     Dates: start: 20080418, end: 20080422
  4. OXYCONTIN [Concomitant]
     Indication: CANCER PAIN
     Dosage: AS USED: 20 MG
     Route: 048
     Dates: start: 20080418, end: 20080501
  5. OXYCONTIN [Concomitant]
     Dosage: AS USED: 50 MG
     Route: 048
     Dates: start: 20080517, end: 20080520
  6. OXYCONTIN [Concomitant]
     Dosage: AS USED: 30 MG
     Route: 048
     Dates: start: 20080502, end: 20080516
  7. FENTANYL TRANSDERMAL SYSTEM [Concomitant]
     Dosage: TOTAL DAILY DOSE: 15 MG  UNIT DOSE: 5 MG
     Route: 062
     Dates: start: 20080521, end: 20080522

REACTIONS (6)
  - FATIGUE [None]
  - HEPATIC FUNCTION ABNORMAL [None]
  - HYPERKALAEMIA [None]
  - PRURITUS [None]
  - RENAL CELL CARCINOMA [None]
  - STOMATITIS [None]
